FAERS Safety Report 7703101-5 (Version None)
Quarter: 2011Q3

REPORT INFORMATION
  Report Type: 
  Country: None (occurrence: None)
  Receive Date: 20110823
  Receipt Date: 20110816
  Transmission Date: 20111222
  Serious: Yes (Death, Hospitalization)
  Sender: FDA-Public Use
  Company Number: US-ASTELLAS-2011US003589

PATIENT
  Sex: Male

DRUGS (9)
  1. AVODART [Concomitant]
     Indication: PROSTATOMEGALY
     Dosage: UNK
     Route: 065
  2. PEPCID [Concomitant]
     Indication: PRODUCT USED FOR UNKNOWN INDICATION
     Dosage: UNK
     Route: 065
  3. MS CONTIN [Concomitant]
     Indication: PAIN
     Dosage: UNK
     Route: 065
  4. FLOMAX [Concomitant]
     Indication: DYSURIA
     Dosage: UNK
     Route: 065
  5. SINEMET [Concomitant]
     Indication: PRODUCT USED FOR UNKNOWN INDICATION
     Dosage: UNK
     Route: 065
  6. ERLOTINIB HYDROCHLORIDE [Suspect]
     Indication: NON-SMALL CELL LUNG CANCER
     Dosage: 150 MG, UID/QD
     Route: 048
     Dates: start: 20110406
  7. PERCOCET [Concomitant]
     Indication: PAIN
     Dosage: UNK
     Route: 065
  8. COLACE [Concomitant]
     Indication: FAECES HARD
     Dosage: UNK
     Route: 065
  9. SENNA [Concomitant]
     Indication: PRODUCT USED FOR UNKNOWN INDICATION
     Dosage: UNK
     Route: 065

REACTIONS (4)
  - DYSPNOEA [None]
  - DEATH [None]
  - PNEUMONIA [None]
  - BACK PAIN [None]
